FAERS Safety Report 6897064-2 (Version None)
Quarter: 2010Q3

REPORT INFORMATION
  Report Type: 
  Country: None (occurrence: None)
  Receive Date: 20100802
  Receipt Date: 20070327
  Transmission Date: 20110219
  Serious: No
  Sender: FDA-Public Use
  Company Number: US-PFIZER INC-2007024894

PATIENT
  Sex: Female
  Weight: 69.9 kg

DRUGS (10)
  1. LYRICA [Suspect]
     Indication: PAIN
     Dates: start: 20060101
  2. QUINAPRIL [Concomitant]
     Indication: HYPERTENSION
  3. PRIMIDONE [Concomitant]
     Indication: ESSENTIAL TREMOR
  4. PRIMIDONE [Concomitant]
     Indication: BALANCE DISORDER
  5. NORVASC [Concomitant]
     Indication: HYPERTENSION
  6. INDERAL [Concomitant]
     Indication: ESSENTIAL TREMOR
  7. XANAX [Concomitant]
     Indication: ANXIETY
  8. PREMARIN [Concomitant]
  9. GENERAL NUTRIENTS/MINERALS/VITAMINS [Concomitant]
     Dates: start: 20070301
  10. CORTISONE [Concomitant]
     Indication: NEURALGIA

REACTIONS (5)
  - ANXIETY [None]
  - DRUG EFFECT DECREASED [None]
  - FEELING ABNORMAL [None]
  - PAIN [None]
  - STRESS [None]
